FAERS Safety Report 9952183 (Version 1)
Quarter: 2014Q1

REPORT INFORMATION
  Report Type: Report from Study
  Country: US (occurrence: US)
  Receive Date: 20140304
  Receipt Date: 20140304
  Transmission Date: 20141002
  Serious: Yes (Hospitalization, Other)
  Sender: FDA-Public Use
  Company Number: US-ABBVIE-13P-163-1075911-00

PATIENT
  Age: 58 Year
  Sex: Female

DRUGS (1)
  1. HUMIRA [Suspect]
     Indication: RHEUMATOID ARTHRITIS
     Dates: start: 2011, end: 201303

REACTIONS (4)
  - Hip fracture [Recovered/Resolved]
  - Knee arthroplasty [Recovered/Resolved]
  - Foot operation [Recovered/Resolved]
  - Arthralgia [Not Recovered/Not Resolved]
